FAERS Safety Report 6294729-0 (Version None)
Quarter: 2009Q3

REPORT INFORMATION
  Report Type: 
  Country: None (occurrence: None)
  Receive Date: 20090803
  Receipt Date: 20090720
  Transmission Date: 20100115
  Serious: Yes (Other)
  Sender: FDA-Public Use
  Company Number: BR-MEDIMMUNE-MEDI-0008166

PATIENT
  Sex: Male
  Weight: 9.8 kg

DRUGS (5)
  1. SYNAGIS [Suspect]
     Route: 030
     Dates: start: 20080728, end: 20080929
  2. ALBUTEROL [Concomitant]
     Route: 055
  3. BECLOMETASONE [Concomitant]
     Route: 055
  4. LOPERAMIDE HYDROCHLORIDE [Concomitant]
  5. RANITIDINE HYDROCHLORIDE [Concomitant]

REACTIONS (17)
  - ADENOIDAL DISORDER [None]
  - ANAEMIA [None]
  - ASTHMA [None]
  - ASTHMATIC CRISIS [None]
  - BRONCHIOLITIS [None]
  - COUGH [None]
  - CYSTIC FIBROSIS [None]
  - DYSPNOEA [None]
  - ECONOMIC PROBLEM [None]
  - LUNG INFECTION [None]
  - NASOPHARYNGITIS [None]
  - PLATELET COUNT INCREASED [None]
  - PULMONARY OEDEMA [None]
  - PYREXIA [None]
  - RHINITIS [None]
  - WEIGHT DECREASED [None]
  - WHEEZING [None]
